FAERS Safety Report 13095097 (Version 1)
Quarter: 2017Q1

REPORT INFORMATION
  Report Type: Other
  Country: US (occurrence: US)
  Receive Date: 20170107
  Receipt Date: 20170107
  Transmission Date: 20170428
  Serious: Yes (Hospitalization)
  Sender: FDA-Public Use
  Company Number: US-GRANULES INDIA LIMITED-1061690

PATIENT
  Age: 65 Year
  Sex: Male

DRUGS (2)
  1. NAPROXEN SODIUM. [Suspect]
     Active Substance: NAPROXEN SODIUM
     Indication: PRODUCT USED FOR UNKNOWN INDICATION
  2. ASPIRIN. [Suspect]
     Active Substance: ASPIRIN

REACTIONS (5)
  - Gastric ulcer [Unknown]
  - Haemoglobin decreased [Recovered/Resolved]
  - Haematocrit decreased [Recovered/Resolved]
  - Faeces discoloured [Unknown]
  - Gastrointestinal haemorrhage [Recovered/Resolved]
